FAERS Safety Report 7323172-8 (Version None)
Quarter: 2011Q1

REPORT INFORMATION
  Report Type: 
  Country: None (occurrence: None)
  Receive Date: 20110301
  Receipt Date: 20110223
  Transmission Date: 20110831
  Serious: Yes (Death, Hospitalization)
  Sender: FDA-Public Use
  Company Number: JP-SANOFI-AVENTIS-2010SA019093

PATIENT
  Age: 74 Year
  Sex: Female

DRUGS (3)
  1. BREDININ [Suspect]
     Route: 048
  2. PREDNISOLONE [Concomitant]
  3. ARAVA [Suspect]
     Route: 048
     Dates: start: 20090428, end: 20100326

REACTIONS (6)
  - RENAL DISORDER [None]
  - HYPOURICAEMIA [None]
  - STAPHYLOCOCCAL INFECTION [None]
  - SEPSIS [None]
  - BONE MARROW FAILURE [None]
  - TOXIC EPIDERMAL NECROLYSIS [None]
